FAERS Safety Report 12491629 (Version 1)
Quarter: 2016Q2

REPORT INFORMATION
  Report Type: Spontaneous
  Country: US (occurrence: None)
  Receive Date: 20160622
  Receipt Date: 20160622
  Transmission Date: 20160815
  Serious: Yes (Disabling)
  Sender: FDA-Public Use
  Company Number: None

PATIENT
  Age: 69 Year
  Sex: Male
  Weight: 140.62 kg

DRUGS (5)
  1. LISINOPRILL [Concomitant]
  2. PROTONIX [Concomitant]
     Active Substance: PANTOPRAZOLE SODIUM
  3. SINUS MEDICATIONS [Concomitant]
  4. LEVAQUIN [Suspect]
     Active Substance: LEVOFLOXACIN
     Indication: SINUSITIS
     Route: 048
     Dates: start: 20160101, end: 20160108
  5. HYDROCHLORATHYAZIDE [Concomitant]

REACTIONS (3)
  - Musculoskeletal stiffness [None]
  - Tendonitis [None]
  - Pain [None]

NARRATIVE: CASE EVENT DATE: 20160108
